FAERS Safety Report 18648977 (Version 2)
Quarter: 2021Q4

REPORT INFORMATION
  Report Type: Spontaneous
  Country: FR (occurrence: FR)
  Receive Date: 20201222
  Receipt Date: 20211104
  Transmission Date: 20220303
  Serious: Yes (Other)
  Sender: FDA-Public Use
  Company Number: None

PATIENT
  Age: 44 Year
  Sex: Female
  Weight: 64 kg

DRUGS (12)
  1. DARUNAVIR [Suspect]
     Active Substance: DARUNAVIR
     Indication: HIV infection
     Dosage: 1 DOSAGE FORM, QD/ START DATE: 02-NOV-2020
     Route: 048
  2. RITONAVIR [Suspect]
     Active Substance: RITONAVIR
     Indication: HIV infection
     Dosage: 1 DOSAGE FORM, QD/ START DATE: 02-NOV-2020
     Route: 048
  3. EMTRICITABINE\TENOFOVIR DISOPROXIL [Suspect]
     Active Substance: EMTRICITABINE\TENOFOVIR DISOPROXIL
     Indication: HIV infection
     Dosage: 1 DOSAGE FORM, QD/ START DATE:02-NOV-2020
     Route: 048
  4. BACTRIM [Suspect]
     Active Substance: SULFAMETHOXAZOLE\TRIMETHOPRIM
     Indication: Pneumocystis jirovecii pneumonia
     Dosage: 6 DOSAGE FORM, QD
     Route: 048
     Dates: start: 20201031, end: 20201110
  5. INSULIN GLARGINE [Concomitant]
     Active Substance: INSULIN GLARGINE
     Dosage: 8 INTERNATIONAL UNIT, QD
     Route: 058
  6. CALCIUM PHOSPHATE, DIBASIC, ANHYDROUS\MAGNESIUM GLYCEROPHOSPHATE\PHOSP [Concomitant]
     Active Substance: CALCIUM PHOSPHATE, DIBASIC, ANHYDROUS\MAGNESIUM GLYCEROPHOSPHATE\PHOSPHORIC ACID\SODIUM PHOSPHATE, D
     Dosage: 150 GTT DROPS, QD
     Route: 048
  7. POTASSIUM CHLORIDE [Concomitant]
     Active Substance: POTASSIUM CHLORIDE
     Dosage: 3 DOSAGE FORM, QD
  8. HUMALOG [Concomitant]
     Active Substance: INSULIN LISPRO
     Dosage: 12 INTERNATIONAL UNIT, QD
     Route: 058
  9. LEUCOVORIN CALCIUM [Concomitant]
     Active Substance: LEUCOVORIN CALCIUM
     Dosage: 1 DOSAGE FORM, QD
     Route: 048
  10. LOVENOX [Concomitant]
     Active Substance: ENOXAPARIN SODIUM
     Dosage: 4 INTERNATIONAL UNIT, QD
     Route: 058
  11. RACECADOTRIL [Concomitant]
     Active Substance: RACECADOTRIL
     Dosage: 3 DOSAGE FORM, QD
     Route: 048
  12. POTASSIUM CHLORIDE [Concomitant]
     Active Substance: POTASSIUM CHLORIDE
     Dosage: 4 DOSAGE FORM, QD
     Route: 048

REACTIONS (3)
  - Hyponatraemia [Recovered/Resolved]
  - Epistaxis [Recovered/Resolved]
  - Thrombocytopenia [Recovered/Resolved]

NARRATIVE: CASE EVENT DATE: 20201101
